FAERS Safety Report 5086960-7 (Version None)
Quarter: 2006Q3

REPORT INFORMATION
  Report Type: 
  Country: None (occurrence: None)
  Receive Date: 20060821
  Receipt Date: 20060810
  Transmission Date: 20061208
  Serious: Yes (Death, Life-Threatening, Hospitalization, Other)
  Sender: FDA-Public Use
  Company Number: 2006-07-1946

PATIENT
  Age: 58 Year
  Sex: Male

DRUGS (10)
  1. TEMODAL [Suspect]
     Indication: METASTASES TO CENTRAL NERVOUS SYSTEM
     Dosage: 140 MG ORAL
     Route: 048
     Dates: start: 20060531, end: 20060630
  2. RADIATION THERAPY NO DOSE FORM [Suspect]
     Indication: METASTASES TO CENTRAL NERVOUS SYSTEM
     Dosage: 30 GY (TOTAL) X-RAY THER
     Dates: start: 20060531, end: 20060614
  3. FORTECORTIN [Concomitant]
  4. HALDOL [Concomitant]
  5. CHEMOTHERAPY REGIMENS [Concomitant]
  6. NEXIUM [Concomitant]
  7. BACTRIM DS [Concomitant]
  8. FRAGMIN [Concomitant]
  9. CODEINE [Concomitant]
  10. ZOLPIDEM [Concomitant]

REACTIONS (9)
  - DYSGEUSIA [None]
  - MALIGNANT NEOPLASM PROGRESSION [None]
  - METASTASES TO LIVER [None]
  - NAUSEA [None]
  - PNEUMONIA [None]
  - POST PROCEDURAL COMPLICATION [None]
  - THROMBOCYTOPENIA [None]
  - VOMITING [None]
  - WHITE BLOOD CELL COUNT INCREASED [None]
